FAERS Safety Report 10539128 (Version 2)
Quarter: 2014Q4

REPORT INFORMATION
  Report Type: Spontaneous
  Country: BR (occurrence: BR)
  Receive Date: 20141023
  Receipt Date: 20141104
  Transmission Date: 20150529
  Serious: Yes (Other)
  Sender: FDA-Public Use
  Company Number: BR-BAXTER-2014BAX061798

PATIENT
  Age: 62 Year
  Sex: Male

DRUGS (2)
  1. LACTATED RINGER^S SOLUTION [Suspect]
     Active Substance: RINGER^S SOLUTION, LACTATED
     Indication: PRODUCT USED FOR UNKNOWN INDICATION
     Route: 065
     Dates: start: 20140916, end: 20140916
  2. VIGADEXA [Concomitant]
     Indication: PROPHYLAXIS
     Dosage: OCULAR DROPS
     Dates: start: 20140915, end: 20140916

REACTIONS (2)
  - Corneal opacity [Recovered/Resolved]
  - Corneal oedema [Recovered/Resolved]

NARRATIVE: CASE EVENT DATE: 20140916
